FAERS Safety Report 6243316-9 (Version None)
Quarter: 2009Q2

REPORT INFORMATION
  Report Type: 
  Country: None (occurrence: None)
  Receive Date: 20090624
  Receipt Date: 20090615
  Transmission Date: 20091009
  Serious: Yes (Other)
  Sender: FDA-Public Use
  Company Number: PHEH2007US08568

PATIENT
  Sex: Female

DRUGS (1)
  1. ELIDEL [Suspect]
     Indication: ECZEMA
     Route: 061
     Dates: start: 20040101

REACTIONS (4)
  - FATIGUE [None]
  - HODGKIN'S DISEASE [None]
  - HYPOTHYROIDISM [None]
  - NEUROPATHY PERIPHERAL [None]
